FAERS Safety Report 5383841-6 (Version None)
Quarter: 2007Q3

REPORT INFORMATION
  Report Type: 
  Country: None (occurrence: None)
  Receive Date: 20070706
  Receipt Date: 20070621
  Transmission Date: 20080115
  Serious: Yes (Hospitalization)
  Sender: FDA-Public Use
  Company Number: 2007PV033059

PATIENT
  Age: 63 Year
  Sex: Female
  Weight: 115.6672 kg

DRUGS (11)
  1. SYMLIN [Suspect]
     Indication: TYPE 2 DIABETES MELLITUS
     Dosage: 120 MCG;TID;SC, SC
     Route: 058
     Dates: start: 20070101
  2. SYMLIN [Suspect]
     Indication: TYPE 2 DIABETES MELLITUS
     Dosage: 120 MCG;TID;SC, SC
     Route: 058
     Dates: start: 20070509
  3. PLAVIX [Concomitant]
  4. TOPROL-XL [Concomitant]
  5. ASPIRIN [Concomitant]
  6. ACCUPRIL [Concomitant]
  7. TORSEMIDE [Concomitant]
  8. SPIRONOLACTONE [Concomitant]
  9. LIPITOR [Concomitant]
  10. HUMALOG [Concomitant]
  11. LANTUS [Concomitant]

REACTIONS (7)
  - AGITATION [None]
  - ANXIETY [None]
  - BLOOD PRESSURE SYSTOLIC INCREASED [None]
  - HYPOTHYROIDISM [None]
  - ILIAC ARTERY STENOSIS [None]
  - MALAISE [None]
  - PULMONARY HYPERTENSION [None]
